FAERS Safety Report 15155498 (Version 1)
Quarter: 2018Q4

REPORT INFORMATION
  Report Type: Spontaneous
  Country: US (occurrence: US)
  Receive Date: 20180717
  Receipt Date: 20180717
  Transmission Date: 20190204
  Serious: No
  Sender: FDA-Public Use
  Company Number: US-TARO-2018TAR00439

PATIENT
  Age: 79 Year
  Sex: Female
  Weight: 77.98 kg

DRUGS (2)
  1. FLUOCINONIDE CREAM USP 0.05%. [Suspect]
     Active Substance: FLUOCINONIDE
     Indication: DERMATITIS
     Dosage: ^TINY SPECK,^ AS NEEDED
     Route: 061
     Dates: start: 20170707
  2. UNSPECIFIED OTHER MEDICATIONS [Concomitant]
     Active Substance: UNSPECIFIED INGREDIENT

REACTIONS (2)
  - Exposure via eye contact [Recovered/Resolved]
  - Eye irritation [Recovered/Resolved]

NARRATIVE: CASE EVENT DATE: 201805
